FAERS Safety Report 4552256-2 (Version None)
Quarter: 2004Q4

REPORT INFORMATION
  Report Type: 
  Country: None (occurrence: None)
  Receive Date: 20041217
  Receipt Date: 20041027
  Transmission Date: 20050328
  Serious: No
  Sender: FDA-Public Use
  Company Number: 2004-BP-10860BP

PATIENT
  Age: 82 Year
  Sex: Female

DRUGS (8)
  1. SPIRIVA [Suspect]
     Indication: CHRONIC OBSTRUCTIVE AIRWAYS DISEASE
     Dosage: 18 MCG (18 MCG), IH
     Route: 055
  2. CARDIZEM CD [Concomitant]
  3. LOPRESSOR [Concomitant]
  4. ISORDIL [Concomitant]
  5. ZANTAC [Concomitant]
  6. METAMUCIL-2 [Concomitant]
  7. STOOL SOFTENER [Concomitant]
  8. OXYGEN (OXYGEN) [Concomitant]

REACTIONS (1)
  - CONSTIPATION [None]
